FAERS Safety Report 7156540-8 (Version None)
Quarter: 2010Q4

REPORT INFORMATION
  Report Type: 
  Country: None (occurrence: None)
  Receive Date: 20101214
  Receipt Date: 20100119
  Transmission Date: 20110411
  Serious: No
  Sender: FDA-Public Use
  Company Number: US-ASTRAZENECA-2009SE26351

PATIENT
  Age: 47 Year
  Sex: Male
  Weight: 104.3 kg

DRUGS (3)
  1. CRESTOR [Suspect]
     Indication: CORONARY ARTERY DISEASE
     Route: 048
     Dates: start: 20090706
  2. CRESTOR [Suspect]
     Route: 048
  3. SYNTHROID [Concomitant]

REACTIONS (1)
  - ERECTILE DYSFUNCTION [None]
